FAERS Safety Report 15663588 (Version 2)
Quarter: 2018Q4

REPORT INFORMATION
  Report Type: Spontaneous
  Country: US (occurrence: US)
  Receive Date: 20181128
  Receipt Date: 20181211
  Transmission Date: 20190205
  Serious: Yes (Other)
  Sender: FDA-Public Use
  Company Number: US-LUPIN PHARMACEUTICALS INC.-2018-08218

PATIENT
  Age: 71 Year
  Sex: Male
  Weight: 71.2 kg

DRUGS (2)
  1. MOXIFLOXACIN HYDROCHLORIDE OPHTHALMIC SOLUTION USP, 0.5% [Suspect]
     Active Substance: MOXIFLOXACIN HYDROCHLORIDE
     Dosage: UNK UNK, TID
     Route: 047
     Dates: start: 201811
  2. MOXIFLOXACIN HYDROCHLORIDE OPHTHALMIC SOLUTION USP, 0.5% [Suspect]
     Active Substance: MOXIFLOXACIN HYDROCHLORIDE
     Indication: CORNEAL ABRASION
     Dosage: UNK UNK, TID
     Route: 047
     Dates: start: 20181016, end: 20181024

REACTIONS (4)
  - Product container issue [None]
  - Corneal infection [Not Recovered/Not Resolved]
  - Liquid product physical issue [Unknown]
  - Corneal abrasion [Not Recovered/Not Resolved]

NARRATIVE: CASE EVENT DATE: 20181026
